FAERS Safety Report 15232957 (Version 1)
Quarter: 2018Q3

REPORT INFORMATION
  Report Type: Spontaneous
  Country: US (occurrence: US)
  Receive Date: 20180709
  Receipt Date: 20180709
  Transmission Date: 20181010
  Serious: Yes (Hospitalization)
  Sender: FDA-Public Use
  Company Number: None

PATIENT
  Age: 61 Year
  Sex: Male

DRUGS (1)
  1. TALTZ [Suspect]
     Active Substance: IXEKIZUMAB
     Dosage: ?          OTHER FREQUENCY:Q 4 WEEKS ;?
     Route: 058
     Dates: start: 20161117

REACTIONS (3)
  - Nausea [None]
  - Abdominal discomfort [None]
  - Pneumonia [None]
